FAERS Safety Report 9223558 (Version 1)
Quarter: 2013Q2

REPORT INFORMATION
  Report Type: Spontaneous
  Country: US (occurrence: US)
  Receive Date: 20130410
  Receipt Date: 20130410
  Transmission Date: 20140414
  Serious: Yes (Hospitalization)
  Sender: FDA-Public Use
  Company Number: US-GLAXOSMITHKLINE-A1018425A

PATIENT
  Age: 55 Year
  Sex: Female

DRUGS (2)
  1. ADVAIR [Suspect]
     Indication: ASTHMA
     Dosage: 1PUFF TWICE PER DAY
     Route: 055
     Dates: start: 2006, end: 2006
  2. ADVAIR [Suspect]
     Indication: ASTHMA
     Dosage: 2PUFF TWICE PER DAY
     Route: 055
     Dates: start: 2006, end: 2006

REACTIONS (5)
  - Myocardial infarction [Recovered/Resolved]
  - Impaired gastric emptying [Recovered/Resolved]
  - Choking sensation [Recovered/Resolved]
  - Dysphagia [Recovered/Resolved]
  - Catheterisation cardiac [Unknown]
